FAERS Safety Report 9782403 (Version 2)
Quarter: 2014Q1

REPORT INFORMATION
  Report Type: Spontaneous
  Country: JP (occurrence: JP)
  Receive Date: 20131226
  Receipt Date: 20140106
  Transmission Date: 20141002
  Serious: No
  Sender: FDA-Public Use
  Company Number: PHHY2013JP151354

PATIENT
  Sex: 0

DRUGS (2)
  1. TASIGNA [Suspect]
     Dosage: 4 DF, QD
     Route: 048
  2. TASIGNA [Suspect]
     Dosage: 2 DF, Q12H

REACTIONS (1)
  - Abdominal discomfort [Unknown]
